FAERS Safety Report 9803944 (Version 1)
Quarter: 2014Q1

REPORT INFORMATION
  Report Type: Spontaneous
  Country: RO (occurrence: None)
  Receive Date: 20140103
  Receipt Date: 20140103
  Transmission Date: 20141002
  Serious: Yes (Hospitalization)
  Sender: FDA-Public Use
  Company Number: 2013P1022161

PATIENT
  Age: 71 Year
  Sex: Female

DRUGS (3)
  1. PANTOPRAZOLE [Suspect]
     Indication: HELICOBACTER INFECTION
  2. CLARITHROMYCIN [Suspect]
  3. AMOXICILLIN [Suspect]

REACTIONS (3)
  - Pseudomembranous colitis [None]
  - Dehydration [None]
  - Hypokalaemia [None]
